FAERS Safety Report 9255658 (Version 3)
Quarter: 2013Q3

REPORT INFORMATION
  Report Type: Spontaneous
  Country: IE (occurrence: IE)
  Receive Date: 20130425
  Receipt Date: 20130718
  Transmission Date: 20140515
  Serious: Yes (Other)
  Sender: FDA-Public Use
  Company Number: PHHY2013IE039518

PATIENT
  Age: 77 Year
  Sex: Male

DRUGS (4)
  1. TAMSU [Suspect]
     Indication: PROSTATIC DISORDER
     Dosage: 1 DF, QD
     Route: 048
     Dates: start: 201211, end: 201303
  2. NATRILIX [Concomitant]
     Dosage: 1.5 MG, QD
  3. CORDARONE [Concomitant]
     Dosage: 1 DF, QD
  4. COVERSYL                                /BEL/ [Concomitant]
     Dosage: 1 DF, QD

REACTIONS (4)
  - Fall [Recovered/Resolved]
  - Tooth loss [Recovered/Resolved]
  - Contusion [Recovered/Resolved]
  - Syncope [Recovered/Resolved]
